FAERS Safety Report 11861847 (Version 1)
Quarter: 2015Q4

REPORT INFORMATION
  Report Type: Spontaneous
  Country: US (occurrence: None)
  Receive Date: 20151222
  Receipt Date: 20151222
  Transmission Date: 20160305
  Serious: Yes (Death)
  Sender: FDA-Public Use
  Company Number: None

PATIENT
  Age: 56 Year
  Sex: Male
  Weight: 95.26 kg

DRUGS (1)
  1. SILDENAFIL 100 MG [Suspect]
     Active Substance: SILDENAFIL
     Route: 048
     Dates: start: 20150911

REACTIONS (3)
  - Hypertension [None]
  - Arteriosclerosis [None]
  - Toxicologic test [None]

NARRATIVE: CASE EVENT DATE: 20150911
